FAERS Safety Report 24435194 (Version 1)
Quarter: 2024Q4

REPORT INFORMATION
  Report Type: Spontaneous
  Country: AE (occurrence: AE)
  Receive Date: 20241015
  Receipt Date: 20241015
  Transmission Date: 20250114
  Serious: Yes (Other)
  Sender: CHEPLAPHARM
  Company Number: AE-CHEPLA-2024012935

PATIENT
  Age: 28 Year
  Sex: Male

DRUGS (7)
  1. CLONAZEPAM [Suspect]
     Active Substance: CLONAZEPAM
     Indication: Extrapyramidal disorder
     Dosage: DAILY DOSE: 1 MILLIGRAM
  2. PROCYCLIDINE [Suspect]
     Active Substance: PROCYCLIDINE
     Indication: Extrapyramidal disorder
     Dosage: DAILY DOSE: 10 MILLIGRAM
  3. PROCYCLIDINE [Suspect]
     Active Substance: PROCYCLIDINE
     Indication: Extrapyramidal disorder
     Dosage: DAILY DOSE: 5 MILLIGRAM
  4. PROPRANOLOL [Suspect]
     Active Substance: PROPRANOLOL HYDROCHLORIDE
     Indication: Extrapyramidal disorder
     Dosage: DAILY DOSE: 20 MILLIGRAM
  5. OMEGA-3 ACIDS [Concomitant]
     Active Substance: OMEGA-3 FATTY ACIDS
  6. VITAMIN E [Concomitant]
     Active Substance: .ALPHA.-TOCOPHEROL
     Dosage: DAILY DOSE: 400 IU (INTERNATIONAL UNIT)
  7. VITAMIN E [Concomitant]
     Active Substance: .ALPHA.-TOCOPHEROL
     Dosage: INCREASED DOSE TO 1200 IU ONCE DAILY?DAILY DOSE: 1200 IU (INTERNATIONAL UNIT)

REACTIONS (4)
  - Tardive dyskinesia [Recovered/Resolved]
  - Blood prolactin increased [Unknown]
  - White blood cell count decreased [Unknown]
  - Off label use [Unknown]
